FAERS Safety Report 8960690 (Version 2)
Quarter: 2013Q1

REPORT INFORMATION
  Report Type: Report from Study
  Country: JP (occurrence: JP)
  Receive Date: 20121213
  Receipt Date: 20130201
  Transmission Date: 20140127
  Serious: Yes (Other)
  Sender: FDA-Public Use
  Company Number: JP-009507513-1212JPN004522

PATIENT
  Age: 39 Year
  Sex: Female
  Weight: 57 kg

DRUGS (7)
  1. GANIREST SUBCUTANEOUS 0.25MG SYRINGE [Suspect]
     Indication: PREVENTION OF PREMATURE OVULATION
     Dosage: 0.25 MG, QD
     Route: 058
     Dates: start: 20120610, end: 20120611
  2. GONAPURE [Suspect]
     Indication: IN VITRO FERTILISATION
     Dosage: 150 (UNDER 1000UNIT), QD
     Route: 058
     Dates: start: 20120602, end: 20120610
  3. MENOTROPINS [Suspect]
     Indication: IN VITRO FERTILISATION
     Dosage: 225 (UNDER 1000UNIT), QD
     Route: 058
     Dates: start: 20120611, end: 20120612
  4. GONADOTROPIN, CHORIONIC [Concomitant]
     Indication: OVULATION INDUCTION
     Dosage: 10 (THOUSAND-MILLION UNIT), QD
     Route: 030
     Dates: start: 20120612, end: 20120612
  5. ESTROGENS (UNSPECIFIED) (+) PROGESTERONE [Concomitant]
     Indication: IN VITRO FERTILISATION
     Dosage: 300 MG QD, DAILY DOSE FREQUENCY UNKNOWN, FORMULATION: EXT
     Route: 067
     Dates: start: 20120615, end: 20120705
  6. ESTRANA [Concomitant]
     Indication: IN VITRO FERTILISATION
     Dosage: UNK, FORMULATION: TAP
     Route: 003
     Dates: start: 20120619, end: 20120621
  7. JULINA [Concomitant]
     Indication: IN VITRO FERTILISATION
     Dosage: UNK
     Route: 048
     Dates: start: 20120621, end: 20120628

REACTIONS (3)
  - Abortion missed [Recovered/Resolved]
  - Pregnancy [None]
  - Maternal exposure before pregnancy [None]
